FAERS Safety Report 12669647 (Version 1)
Quarter: 2016Q3

REPORT INFORMATION
  Report Type: Report from Study
  Country: ZA (occurrence: ZA)
  Receive Date: 20160819
  Receipt Date: 20160819
  Transmission Date: 20161109
  Serious: Yes (Death, Hospitalization)
  Sender: FDA-Public Use
  Company Number: ZA-AMGEN-ZAFSL2016106705

PATIENT
  Age: 23 Year
  Sex: Female

DRUGS (1)
  1. ARANESP [Suspect]
     Active Substance: DARBEPOETIN ALFA
     Indication: CHRONIC KIDNEY DISEASE
     Dosage: 40 UNK, QWK
     Route: 058
     Dates: start: 201312, end: 201603

REACTIONS (2)
  - Haemoglobin abnormal [Unknown]
  - Fungaemia [Fatal]

NARRATIVE: CASE EVENT DATE: 20160309
